FAERS Safety Report 16661575 (Version 1)
Quarter: 2019Q3

REPORT INFORMATION
  Report Type: Spontaneous
  Country: JP (occurrence: JP)
  Receive Date: 20190802
  Receipt Date: 20190802
  Transmission Date: 20191004
  Serious: Yes (Other)
  Sender: FDA-Public Use
  Company Number: JP-BAYER-2019-140907

PATIENT
  Sex: Female

DRUGS (1)
  1. YAZ [Suspect]
     Active Substance: DROSPIRENONE\ETHINYL ESTRADIOL
     Indication: PROPHYLAXIS
     Dosage: UNK
     Route: 048
     Dates: start: 20190706

REACTIONS (5)
  - Menorrhagia [None]
  - Product use in unapproved indication [None]
  - Sudden hearing loss [None]
  - Hypoacusis [None]
  - Off label use [None]

NARRATIVE: CASE EVENT DATE: 201907
